FAERS Safety Report 7817592-2 (Version None)
Quarter: 2011Q4

REPORT INFORMATION
  Report Type: 
  Country: None (occurrence: None)
  Receive Date: 20111017
  Receipt Date: 20111011
  Transmission Date: 20120403
  Serious: Yes (Hospitalization, Other)
  Sender: FDA-Public Use
  Company Number: PHHY2011US42341

PATIENT
  Sex: Female
  Weight: 61.224 kg

DRUGS (14)
  1. TYSABRI [Concomitant]
  2. BENADRYL [Concomitant]
  3. PREDNISONE [Concomitant]
  4. RITALIN [Concomitant]
  5. VESICARE [Concomitant]
     Dosage: 10 G, UNK
  6. NORGESTIMATE AND ETHINYL ESTRADIOL [Concomitant]
     Dosage: UNK UKN, UNK
  7. GILENYA [Suspect]
     Indication: MULTIPLE SCLEROSIS
     Dosage: 0.5 MG, QD
     Route: 048
     Dates: start: 20110407, end: 20110901
  8. MACROBID [Concomitant]
     Dosage: UNK UKN, OT
  9. CITALOPRAM HYDROBROMIDE [Concomitant]
     Dosage: 50 MG PER DAY
  10. TRAZODONE HYDROCHLORIDE [Concomitant]
     Dosage: 60 MG, PER DAY
  11. TOBRAMYCIN [Concomitant]
  12. AMOXY [Concomitant]
  13. SOLU-MEDROL [Concomitant]
     Indication: MULTIPLE SCLEROSIS RELAPSE
     Dosage: UNK UKN, UNK
  14. VITAMIN D [Concomitant]

REACTIONS (19)
  - MULTIPLE SCLEROSIS RELAPSE [None]
  - CENTRAL NERVOUS SYSTEM LESION [None]
  - COGNITIVE DISORDER [None]
  - GAIT DISTURBANCE [None]
  - DYSPNOEA [None]
  - EYE MOVEMENT DISORDER [None]
  - VISUAL IMPAIRMENT [None]
  - CONFUSIONAL STATE [None]
  - CONVULSION [None]
  - HYPOAESTHESIA [None]
  - CHEST DISCOMFORT [None]
  - VISION BLURRED [None]
  - DISTURBANCE IN ATTENTION [None]
  - SINUSITIS [None]
  - FATIGUE [None]
  - PARAESTHESIA [None]
  - MEMORY IMPAIRMENT [None]
  - ASTHENIA [None]
  - DYSPHAGIA [None]
